FAERS Safety Report 4664996-5 (Version None)
Quarter: 2005Q2

REPORT INFORMATION
  Report Type: 
  Country: None (occurrence: None)
  Receive Date: 20050517
  Receipt Date: 20050429
  Transmission Date: 20051028
  Serious: Yes (Hospitalization)
  Sender: FDA-Public Use
  Company Number: DE_050315434

PATIENT
  Age: 81 Year
  Sex: Male

DRUGS (3)
  1. ZYPREXA [Suspect]
     Indication: DEMENTIA ALZHEIMER'S TYPE
     Dosage: 5 MG DAY
     Route: 048
     Dates: start: 20031216, end: 20040823
  2. ZOLOFT [Concomitant]
  3. AXURA              (MEMANTINE HYDROCHLORIDE) [Concomitant]

REACTIONS (7)
  - AGGRESSION [None]
  - DELIRIUM [None]
  - DRUG INTERACTION [None]
  - DRUG LEVEL INCREASED [None]
  - HALLUCINATION, VISUAL [None]
  - INFECTION [None]
  - RESTLESSNESS [None]
